FAERS Safety Report 5692093-9 (Version None)
Quarter: 2008Q2

REPORT INFORMATION
  Report Type: 
  Country: None (occurrence: None)
  Receive Date: 20080402
  Receipt Date: 20080107
  Transmission Date: 20081010
  Serious: Yes (Hospitalization)
  Sender: FDA-Public Use
  Company Number: DE-ROCHE-554543

PATIENT
  Age: 53 Year
  Sex: Female
  Weight: 80 kg

DRUGS (3)
  1. PEGASYS [Suspect]
     Indication: HEPATITIS C
     Route: 058
     Dates: start: 20071120
  2. RIBAVIRIN [Suspect]
     Indication: HEPATITIS C
     Dosage: REPORTED AS DOSE ADJUSTED.
     Route: 048
     Dates: start: 20071120
  3. VX-950 [Suspect]
     Indication: HEPATITIS C
     Dosage: DRUG REPORTED AS ^TELAPREVIR^
     Route: 048
     Dates: start: 20071120

REACTIONS (2)
  - ANAEMIA [None]
  - GENERAL PHYSICAL HEALTH DETERIORATION [None]
